FAERS Safety Report 8755983 (Version 4)
Quarter: 2013Q2

REPORT INFORMATION
  Report Type: Spontaneous
  Country: US (occurrence: None)
  Receive Date: 20120814
  Receipt Date: 20130524
  Transmission Date: 20140414
  Serious: Yes (Death, Other)
  Sender: FDA-Public Use
  Company Number: 2012-3624

PATIENT
  Age: 20 Year
  Sex: Male
  Weight: 50 kg

DRUGS (1)
  1. INCRELEX [Suspect]
     Indication: PRIMARY INSULIN LIKE GROWTH FACTOR-1 DEFICIENCY
     Dosage: (12 MG,2 IN 1 D)
     Route: 058
     Dates: start: 20120308, end: 20120614

REACTIONS (13)
  - Spinal column stenosis [None]
  - Hypoglycaemia [None]
  - Hypophagia [None]
  - Headache [None]
  - Confusional state [None]
  - Unresponsive to stimuli [None]
  - Skin discolouration [None]
  - Obstructive airways disorder [None]
  - Drug dose omission [None]
  - Sudden death [None]
  - Snoring [None]
  - Weight abnormal [None]
  - Laboratory test abnormal [None]
